FAERS Safety Report 20717050 (Version 1)
Quarter: 2022Q2

REPORT INFORMATION
  Report Type: Spontaneous
  Country: US (occurrence: US)
  Receive Date: 20220417
  Receipt Date: 20220417
  Transmission Date: 20220720
  Serious: No
  Sender: FDA-Public Use
  Company Number: US-SA-SAC20220412000568

PATIENT
  Age: 49 Year
  Sex: Male

DRUGS (6)
  1. DUPIXENT [Suspect]
     Active Substance: DUPILUMAB
     Indication: Nasal polyps
     Route: 058
     Dates: start: 202105
  2. AZITHROMYCIN [Concomitant]
     Active Substance: AZITHROMYCIN
  3. AZELASTINE [Concomitant]
     Active Substance: AZELASTINE
  4. FLUTICASONE [Concomitant]
     Active Substance: FLUTICASONE
  5. EPINEPHRINE [Concomitant]
     Active Substance: EPINEPHRINE
  6. SYNTHROID [Concomitant]
     Active Substance: LEVOTHYROXINE SODIUM

REACTIONS (8)
  - Bronchitis [Unknown]
  - Pyrexia [Unknown]
  - Malaise [Unknown]
  - Arthralgia [Unknown]
  - Wheezing [Unknown]
  - SARS-CoV-2 test positive [Unknown]
  - Product use in unapproved indication [Unknown]
  - Product prescribing issue [Unknown]

NARRATIVE: CASE EVENT DATE: 20220405
